FAERS Safety Report 5419663-7 (Version None)
Quarter: 2007Q3

REPORT INFORMATION
  Report Type: 
  Country: None (occurrence: None)
  Receive Date: 20070820
  Receipt Date: 20070813
  Transmission Date: 20080115
  Serious: Yes (Other)
  Sender: FDA-Public Use
  Company Number: PHBS2007BR13523

PATIENT
  Age: 51 Year
  Sex: Female
  Weight: 62 kg

DRUGS (3)
  1. MERICOMB [Suspect]
     Indication: HORMONE REPLACEMENT THERAPY
     Dosage: 1 MG, QD
     Route: 048
     Dates: end: 20070611
  2. MERICOMB [Suspect]
     Dosage: 1 MG, QD
     Route: 048
     Dates: start: 20070722
  3. ORMIGREIN [Concomitant]
     Indication: MIGRAINE
     Dosage: 2 DF, QD
     Route: 048

REACTIONS (9)
  - DRUG INEFFECTIVE [None]
  - DYSPEPSIA [None]
  - GASTRITIS [None]
  - HELICOBACTER INFECTION [None]
  - HERNIA [None]
  - HOT FLUSH [None]
  - IRRITABLE BOWEL SYNDROME [None]
  - MIGRAINE [None]
  - SURGERY [None]
